FAERS Safety Report 6332542-6 (Version None)
Quarter: 2009Q3

REPORT INFORMATION
  Report Type: 
  Country: None (occurrence: None)
  Receive Date: 20090828
  Receipt Date: 20090825
  Transmission Date: 20100115
  Serious: Yes (Hospitalization)
  Sender: FDA-Public Use
  Company Number: US-B.I. PHARMACEUTICALS,INC./RIDGEFIELD-2009-DE-05611GD

PATIENT
  Age: 70 Year
  Sex: Male

DRUGS (28)
  1. MELOXICAM [Suspect]
  2. MORPHINE SULFATE [Suspect]
  3. PARACETAMOL [Suspect]
  4. THALIDOMIDE [Suspect]
  5. DEXAMETHASONE [Suspect]
  6. PAMIDRONATE DISODIUM [Suspect]
  7. CEFEPIME HYDROCHLORIDE [Suspect]
     Indication: ANTIBIOTIC THERAPY
     Route: 042
  8. VANCOMYCIN HYDROCHLORIDE [Suspect]
     Indication: ANTIBIOTIC THERAPY
     Route: 042
  9. FLUCONAZOLE [Suspect]
     Route: 048
  10. HEPARIN SODIUM [Suspect]
  11. RANITIDINE HYDROCHLORIDE [Concomitant]
  12. OMEPRAZOLE [Concomitant]
  13. POLYETHYLENE GLYCOL [Concomitant]
     Indication: LAXATIVE SUPPORTIVE CARE
     Route: 048
  14. HYDROCODONE [Concomitant]
  15. PROMETHAZINE HCL [Concomitant]
  16. LIDOCAINE [Concomitant]
     Route: 062
  17. TESTOSTERONE ENANTHATE [Concomitant]
  18. NALOXONE HCL [Concomitant]
  19. PANTOPRAZOLE SODIUM [Concomitant]
  20. DIPHENHYDRAMINE HCL [Concomitant]
  21. ZOLPIDEM TARTRATE [Concomitant]
  22. AMIODARONE HCL [Concomitant]
  23. ALPRAZOLAM [Concomitant]
  24. NEUPOGEN [Concomitant]
  25. MEROPENEM [Concomitant]
     Indication: ANTIBIOTIC THERAPY
     Route: 042
  26. DAPTOMYCIN [Concomitant]
     Indication: ANTIBIOTIC THERAPY
  27. TOBRAMYCIN [Concomitant]
     Indication: ANTIBIOTIC THERAPY
  28. CASPOFUNGIN ACETATE [Concomitant]
     Indication: ANTIBIOTIC THERAPY

REACTIONS (4)
  - ACUTE GENERALISED EXANTHEMATOUS PUSTULOSIS [None]
  - ATRIAL FIBRILLATION [None]
  - LETHARGY [None]
  - UNRESPONSIVE TO STIMULI [None]
